FAERS Safety Report 6355184-5 (Version None)
Quarter: 2009Q3

REPORT INFORMATION
  Report Type: 
  Country: None (occurrence: None)
  Receive Date: 20090914
  Receipt Date: 20090901
  Transmission Date: 20100115
  Serious: Yes (Death, Other)
  Sender: FDA-Public Use
  Company Number: US-PFIZER INC-2009234180

PATIENT
  Sex: Male

DRUGS (2)
  1. GEODON [Suspect]
     Indication: MAJOR DEPRESSION
     Dosage: 120 MG, 1X/DAY
     Route: 048
     Dates: start: 20080301
  2. GEODON [Suspect]
     Indication: PSYCHOTIC DISORDER

REACTIONS (7)
  - COMPLETED SUICIDE [None]
  - DEPRESSION [None]
  - EDUCATIONAL PROBLEM [None]
  - MEMORY IMPAIRMENT [None]
  - PSYCHOTIC DISORDER [None]
  - SUICIDAL IDEATION [None]
  - UNDERDOSE [None]
